FAERS Safety Report 6996691-1 (Version None)
Quarter: 2010Q3

REPORT INFORMATION
  Report Type: 
  Country: None (occurrence: None)
  Receive Date: 20100918
  Receipt Date: 20090624
  Transmission Date: 20110219
  Serious: Yes (Other)
  Sender: FDA-Public Use
  Company Number: US-WYE-H09910409

PATIENT
  Age: 26 Year
  Sex: Female

DRUGS (1)
  1. EFFEXOR [Suspect]
     Route: 048
     Dates: start: 20090101

REACTIONS (1)
  - SUICIDAL IDEATION [None]
